FAERS Safety Report 5493755-9 (Version None)
Quarter: 2007Q4

REPORT INFORMATION
  Report Type: 
  Country: None (occurrence: None)
  Receive Date: 20071023
  Receipt Date: 20071016
  Transmission Date: 20080405
  Serious: Yes (Other)
  Sender: FDA-Public Use
  Company Number: DK-ROXANE LABORATORIES, INC-2007-BP-22836RO

PATIENT
  Age: 3 Year
  Sex: Female

DRUGS (18)
  1. METHOTREXATE [Suspect]
     Indication: B PRECURSOR TYPE ACUTE LEUKAEMIA
     Route: 037
     Dates: start: 20051106
  2. VINCRISTINE [Suspect]
     Indication: B PRECURSOR TYPE ACUTE LEUKAEMIA
     Dates: start: 20051106
  3. DOXORUBICIN HCL [Suspect]
     Indication: B PRECURSOR TYPE ACUTE LEUKAEMIA
     Dates: start: 20051106
  4. PREDNISOLONE [Suspect]
     Indication: B PRECURSOR TYPE ACUTE LEUKAEMIA
     Dates: start: 20051106
  5. MICONAZOLE [Concomitant]
     Indication: CANDIDIASIS
     Route: 061
     Dates: start: 20051111, end: 20051215
  6. TAZOBACTAM [Concomitant]
     Indication: INFECTION
     Route: 042
     Dates: start: 20051117, end: 20051122
  7. GENTAMICIN [Concomitant]
     Indication: INFECTION
     Route: 042
     Dates: start: 20051117, end: 20051122
  8. FLUCONAZOLE [Concomitant]
     Indication: INFECTION
     Route: 048
     Dates: start: 20051117, end: 20051128
  9. FLUCONAZOLE [Concomitant]
     Route: 042
     Dates: start: 20051128, end: 20051215
  10. CEFTAZIDIM [Concomitant]
     Indication: INFECTION
     Dates: start: 20051123, end: 20051215
  11. VANCOMYCIN [Concomitant]
     Indication: INFECTION
     Dates: start: 20051123, end: 20051215
  12. METRONIDAZOLE [Concomitant]
     Indication: INFECTION
     Dates: start: 20051128, end: 20051129
  13. ACYCLOVIR [Concomitant]
     Indication: INFECTION
     Dates: start: 20051128, end: 20051129
  14. ERYTHROMYCIN [Concomitant]
     Indication: MYCOPLASMA INFECTION
     Dates: start: 20051129, end: 20051215
  15. BACTRIM [Concomitant]
     Indication: INFECTION
     Dates: start: 20051129, end: 20051215
  16. AMBISOME [Concomitant]
     Indication: INFECTION
     Dates: start: 20051129, end: 20051212
  17. VORICONAZOLE [Concomitant]
     Indication: INFECTION
     Route: 042
     Dates: start: 20051112, end: 20060425
  18. VORICONAZOLE [Concomitant]
     Route: 048
     Dates: start: 20060425

REACTIONS (6)
  - CANDIDIASIS [None]
  - INTERSTITIAL LUNG DISEASE [None]
  - NEUTROPENIA [None]
  - OESOPHAGEAL STENOSIS [None]
  - ORAL CANDIDIASIS [None]
  - PERICARDITIS FUNGAL [None]
